FAERS Safety Report 5586348-6 (Version None)
Quarter: 2008Q1

REPORT INFORMATION
  Report Type: 
  Country: None (occurrence: None)
  Receive Date: 20080110
  Receipt Date: 20080103
  Transmission Date: 20080703
  Serious: Yes (Other)
  Sender: FDA-Public Use
  Company Number: PHEH2008US00477

PATIENT
  Sex: Female
  Weight: 62.585 kg

DRUGS (4)
  1. ZOMETA [Suspect]
     Indication: METASTASES TO BONE
     Dosage: 4 MG EVERY 3 WEEKS
     Dates: start: 20060208
  2. CALCIUM W/VITAMIN D NOS [Concomitant]
  3. VITAMIN CAP [Concomitant]
  4. IRON [Concomitant]

REACTIONS (7)
  - BONE DISORDER [None]
  - CHONDROMALACIA [None]
  - GAIT DISTURBANCE [None]
  - NEOPLASM MALIGNANT [None]
  - OSTEOARTHRITIS [None]
  - OSTEONECROSIS [None]
  - PAIN [None]
